FAERS Safety Report 9026165 (Version 1)
Quarter: 2013Q1

REPORT INFORMATION
  Report Type: Spontaneous
  Country: US (occurrence: None)
  Receive Date: 20130107
  Receipt Date: 20130107
  Transmission Date: 20140127
  Serious: Yes (Hospitalization)
  Sender: FDA-Public Use
  Company Number: 2012STPI000786

PATIENT
  Age: 59 Year
  Sex: Male

DRUGS (1)
  1. MATULANE [Suspect]
     Indication: CENTRAL NERVOUS SYSTEM LYMPHOMA
     Route: 048
     Dates: start: 20121129

REACTIONS (1)
  - Nonspecific reaction [None]
